FAERS Safety Report 11308249 (Version 1)
Quarter: 2015Q3

REPORT INFORMATION
  Report Type: Spontaneous
  Country: US (occurrence: US)
  Receive Date: 20150724
  Receipt Date: 20150724
  Transmission Date: 20151125
  Serious: Yes (Other)
  Sender: FDA-Public Use
  Company Number: US-BAYER-2015-378432

PATIENT
  Age: 20 Year
  Sex: Male

DRUGS (1)
  1. SORAFENIB (RAF KINASE INHIBITOR) [Suspect]
     Active Substance: SORAFENIB
     Indication: THYROID CANCER METASTATIC
     Dosage: UNK

REACTIONS (3)
  - Off label use [None]
  - Medullary thyroid cancer [Not Recovered/Not Resolved]
  - Palmar-plantar erythrodysaesthesia syndrome [None]
